FAERS Safety Report 24751723 (Version 2)
Quarter: 2025Q1

REPORT INFORMATION
  Report Type: Spontaneous
  Country: US (occurrence: US)
  Receive Date: 20241219
  Receipt Date: 20250122
  Transmission Date: 20250409
  Serious: No
  Sender: SUNOVION
  Company Number: US-SMPA-2024SPA005704AA

PATIENT

DRUGS (10)
  1. ORGOVYX [Suspect]
     Active Substance: RELUGOLIX
     Indication: Prostate cancer
     Dosage: 360 MG, SINGLE
     Route: 048
     Dates: start: 20240917, end: 20240917
  2. ORGOVYX [Suspect]
     Active Substance: RELUGOLIX
     Dosage: 120 MG, QD
     Route: 048
     Dates: start: 20240918
  3. ATORVASTATIN [Concomitant]
     Active Substance: ATORVASTATIN
  4. IMIPRAMINE [Concomitant]
     Active Substance: IMIPRAMINE
  5. HUMALOG [Concomitant]
     Active Substance: INSULIN LISPRO
  6. POTASSIUM CITRATE [Concomitant]
     Active Substance: POTASSIUM CITRATE
  7. PROBIOTICS NOS [Concomitant]
     Active Substance: PROBIOTICS NOS
  8. TADALAFIL [Concomitant]
     Active Substance: TADALAFIL
  9. TRESIBA [Concomitant]
     Active Substance: INSULIN DEGLUDEC
     Route: 058
  10. SODIUM BICARBONATE [Concomitant]
     Active Substance: SODIUM BICARBONATE

REACTIONS (3)
  - Pruritus [Unknown]
  - Dry skin [Unknown]
  - Nausea [Unknown]
